FAERS Safety Report 7278811-7 (Version None)
Quarter: 2011Q1

REPORT INFORMATION
  Report Type: 
  Country: None (occurrence: None)
  Receive Date: 20110207
  Receipt Date: 20110128
  Transmission Date: 20110831
  Serious: Yes (Disabling)
  Sender: FDA-Public Use
  Company Number: DK-TEVA-229969ISR

PATIENT
  Sex: Male

DRUGS (4)
  1. AZATHIOPRINE [Concomitant]
  2. METHOTREXATE [Suspect]
     Indication: SARCOIDOSIS
     Dates: start: 20051027, end: 20051222
  3. METHOTREXATE [Suspect]
     Dates: start: 20080118
  4. PREDNISOLONE [Concomitant]
     Indication: SARCOIDOSIS
     Dates: start: 20051027

REACTIONS (2)
  - PROGRESSIVE MULTIFOCAL LEUKOENCEPHALOPATHY [None]
  - JC VIRUS INFECTION [None]
